FAERS Safety Report 11257610 (Version 2)
Quarter: 2015Q3

REPORT INFORMATION
  Report Type: Spontaneous
  Country: US (occurrence: US)
  Receive Date: 20150710
  Receipt Date: 20150812
  Transmission Date: 20151125
  Serious: No
  Sender: FDA-Public Use
  Company Number: US-009507513-1507USA004363

PATIENT

DRUGS (1)
  1. ZEMURON [Suspect]
     Active Substance: ROCURONIUM BROMIDE

REACTIONS (2)
  - Incorrect product storage [Unknown]
  - No adverse event [Unknown]
